FAERS Safety Report 24253459 (Version 3)
Quarter: 2025Q1

REPORT INFORMATION
  Report Type: Report from Study
  Country: DE (occurrence: DE)
  Receive Date: 20240827
  Receipt Date: 20250225
  Transmission Date: 20250409
  Serious: Yes (Hospitalization)
  Sender: BAXTER
  Company Number: DE-BAXTER-2024BAX023676

PATIENT
  Age: 66 Year
  Sex: Male

DRUGS (10)
  1. AMINO ACIDS\DEXTROSE\ELECTROLYTES NOS\SOYBEAN OIL [Suspect]
     Active Substance: AMINO ACIDS\DEXTROSE\ELECTROLYTES NOS\SOYBEAN OIL
     Indication: Decreased appetite
     Route: 042
     Dates: start: 20240126
  2. AMINO ACIDS\DEXTROSE\ELECTROLYTES NOS\SOYBEAN OIL [Suspect]
     Active Substance: AMINO ACIDS\DEXTROSE\ELECTROLYTES NOS\SOYBEAN OIL
     Indication: Oesophageal carcinoma
  3. AMINO ACIDS\DEXTROSE\ELECTROLYTES NOS\SOYBEAN OIL [Suspect]
     Active Substance: AMINO ACIDS\DEXTROSE\ELECTROLYTES NOS\SOYBEAN OIL
     Indication: Parenteral nutrition
  4. CERNEVIT [Suspect]
     Active Substance: VITAMINS
     Indication: Decreased appetite
     Route: 042
     Dates: start: 20240126
  5. CERNEVIT [Suspect]
     Active Substance: VITAMINS
     Indication: Oesophageal carcinoma
  6. CERNEVIT [Suspect]
     Active Substance: VITAMINS
     Indication: Parenteral nutrition
  7. ELECTROLYTES NOS\MINERALS [Suspect]
     Active Substance: ELECTROLYTES NOS\MINERALS
     Indication: Decreased appetite
     Route: 042
     Dates: start: 20240126
  8. ELECTROLYTES NOS\MINERALS [Suspect]
     Active Substance: ELECTROLYTES NOS\MINERALS
     Indication: Oesophageal carcinoma
  9. ELECTROLYTES NOS\MINERALS [Suspect]
     Active Substance: ELECTROLYTES NOS\MINERALS
     Indication: Parenteral nutrition
  10. UNSPECIFIED INGREDIENT [Suspect]
     Active Substance: UNSPECIFIED INGREDIENT
     Route: 065

REACTIONS (6)
  - Infusion site erythema [Unknown]
  - Infusion site discharge [Unknown]
  - Epilepsy [Recovered/Resolved]
  - Epilepsy [Unknown]
  - Foaming at mouth [Unknown]
  - Dyspnoea [Unknown]

NARRATIVE: CASE EVENT DATE: 20240820
